FAERS Safety Report 10802881 (Version 1)
Quarter: 2015Q1

REPORT INFORMATION
  Report Type: Spontaneous
  Country: US (occurrence: US)
  Receive Date: 20150217
  Receipt Date: 20150217
  Transmission Date: 20150721
  Serious: No
  Sender: FDA-Public Use
  Company Number: US-PFIZER INC-2015057842

PATIENT

DRUGS (2)
  1. AROMASIN [Suspect]
     Active Substance: EXEMESTANE
     Dosage: UNK (1 CYCLE)
  2. AFINITOR [Suspect]
     Active Substance: EVEROLIMUS
     Dosage: UNK (1 CYCLE)

REACTIONS (1)
  - Herpes zoster [Unknown]
